FAERS Safety Report 18376407 (Version 1)
Quarter: 2020Q4

REPORT INFORMATION
  Report Type: Other
  Country: CA (occurrence: CA)
  Receive Date: 20201013
  Receipt Date: 20201013
  Transmission Date: 20210114
  Serious: Yes (Other)
  Sender: FDA-Public Use
  Company Number: CA-PFIZER INC-2020392260

PATIENT
  Age: 15 Year
  Sex: Male

DRUGS (5)
  1. LAMOTRIGINE. [Suspect]
     Active Substance: LAMOTRIGINE
     Indication: BEHAVIOUR DISORDER
     Dosage: 25 MG, 2X/DAY
  2. QUETIAPINE. [Suspect]
     Active Substance: QUETIAPINE
     Indication: BEHAVIOUR DISORDER
     Dosage: 50 MG, 1X/DAY
  3. CLONIDINE. [Suspect]
     Active Substance: CLONIDINE
     Indication: BEHAVIOUR DISORDER
     Dosage: 0.1 MG, 2X/DAY
  4. OLANZAPINE. [Suspect]
     Active Substance: OLANZAPINE
     Indication: BEHAVIOUR DISORDER
     Dosage: 10 MG, 2X/DAY
  5. SERTRALINE HCL [Suspect]
     Active Substance: SERTRALINE HYDROCHLORIDE
     Indication: BEHAVIOUR DISORDER
     Dosage: 100 MG, 1X/DAY

REACTIONS (5)
  - Overweight [Unknown]
  - Product use issue [Unknown]
  - Blood prolactin increased [Unknown]
  - Off label use [Unknown]
  - Product use in unapproved indication [Unknown]
